FAERS Safety Report 15776249 (Version 1)
Quarter: 2018Q4

REPORT INFORMATION
  Report Type: Spontaneous
  Country: US (occurrence: US)
  Receive Date: 20181228
  Receipt Date: 20181228
  Transmission Date: 20190205
  Serious: Yes (Hospitalization, Disabling, Other)
  Sender: FDA-Public Use
  Company Number: None

PATIENT
  Age: 20 Year
  Sex: Female
  Weight: 54 kg

DRUGS (1)
  1. WELLBUTRIN [Suspect]
     Active Substance: BUPROPION HYDROCHLORIDE
     Indication: PRODUCT USED FOR UNKNOWN INDICATION
     Route: 048
     Dates: start: 20180314, end: 20180331

REACTIONS (7)
  - Mobility decreased [None]
  - Amnesia [None]
  - Craniocerebral injury [None]
  - Seizure [None]
  - Disturbance in attention [None]
  - Affect lability [None]
  - Feeling abnormal [None]

NARRATIVE: CASE EVENT DATE: 20180331
